FAERS Safety Report 13434411 (Version 1)
Quarter: 2017Q2

REPORT INFORMATION
  Report Type: Spontaneous
  Country: US (occurrence: US)
  Receive Date: 20170412
  Receipt Date: 20170412
  Transmission Date: 20170830
  Serious: Yes (Hospitalization)
  Sender: FDA-Public Use
  Company Number: None

PATIENT
  Age: 63 Year
  Sex: Male

DRUGS (15)
  1. AZILECT [Concomitant]
     Active Substance: RASAGILINE MESYLATE
  2. PANTOPRAZOLE [Concomitant]
     Active Substance: PANTOPRAZOLE
  3. CARB/LEVO [Concomitant]
     Active Substance: CARBIDOPA\LEVODOPA
  4. CLONAZEPAM. [Concomitant]
     Active Substance: CLONAZEPAM
  5. LACTOBACILLUS ACIDOPHILUS\LACTOBACILLUS BULGARICUS [Concomitant]
     Active Substance: LACTOBACILLUS ACIDOPHILUS\LACTOBACILLUS DELBRUECKII SUBSP. BULGARICUS
  6. AMLODIPINE [Concomitant]
     Active Substance: AMLODIPINE BESYLATE
  7. ATORVASTATI [Concomitant]
  8. ONDANSETRON [Concomitant]
     Active Substance: ONDANSETRON
  9. ASPIRIN. [Concomitant]
     Active Substance: ASPIRIN
  10. TASIGNA [Suspect]
     Active Substance: NILOTINIB
     Indication: LEUKAEMIA
     Route: 048
     Dates: start: 20101105
  11. TESTOST [Concomitant]
  12. LOSARTAN POT TAB 50MG CADISTA [Concomitant]
     Active Substance: LOSARTAN POTASSIUM
  13. COLLAGENASE SANTYL [Concomitant]
     Active Substance: COLLAGENASE CLOSTRIDIUM HISTOLYTICUM
  14. PROTEINEX [Concomitant]
  15. AINC SULFATE [Concomitant]

REACTIONS (1)
  - Sepsis [None]

NARRATIVE: CASE EVENT DATE: 20170301
